FAERS Safety Report 20669819 (Version 1)
Quarter: 2022Q2

REPORT INFORMATION
  Report Type: Spontaneous
  Country: DK (occurrence: DK)
  Receive Date: 20220404
  Receipt Date: 20220404
  Transmission Date: 20220721
  Serious: Yes (Other)
  Sender: FDA-Public Use
  Company Number: None

PATIENT
  Age: 35 Year
  Sex: Male

DRUGS (1)
  1. RISPERIDONE [Suspect]
     Active Substance: RISPERIDONE
     Indication: Schizophrenia
     Dosage: DOSAGE: UNKNOWN
     Route: 048
     Dates: start: 20180831

REACTIONS (2)
  - Feeling abnormal [Unknown]
  - Psychotic symptom [Unknown]

NARRATIVE: CASE EVENT DATE: 20180901
